FAERS Safety Report 5836032-6 (Version None)
Quarter: 2008Q3

REPORT INFORMATION
  Report Type: 
  Country: None (occurrence: None)
  Receive Date: 20080806
  Receipt Date: 20080725
  Transmission Date: 20090109
  Serious: Yes (Hospitalization)
  Sender: FDA-Public Use
  Company Number: SG-PFIZER INC-2008062691

PATIENT
  Age: 85 Year
  Sex: Female
  Weight: 40 kg

DRUGS (5)
  1. PHENYTOIN [Suspect]
     Indication: EPILEPSY
     Route: 048
     Dates: start: 20080219, end: 20080320
  2. CALCIUM WITH VITAMIN D [Concomitant]
     Dosage: TEXT:2 TABLETS
     Route: 048
  3. OMEPRAZOLE [Concomitant]
     Route: 048
  4. SANGOBION [Concomitant]
     Dosage: TEXT:2 CAPSULES
     Route: 048
  5. SIMVASTATIN [Concomitant]
     Route: 048

REACTIONS (1)
  - RASH MACULO-PAPULAR [None]
